FAERS Safety Report 18337474 (Version 2)
Quarter: 2020Q4

REPORT INFORMATION
  Report Type: Report from Study
  Country: CA (occurrence: CA)
  Receive Date: 20201002
  Receipt Date: 20201123
  Transmission Date: 20210113
  Serious: Yes (Hospitalization)
  Sender: FDA-Public Use
  Company Number: CA-AMGEN-CANSL2020156532

PATIENT
  Age: 80 Year
  Sex: Female

DRUGS (2)
  1. PROLIA [Suspect]
     Active Substance: DENOSUMAB
     Indication: PRODUCT USED FOR UNKNOWN INDICATION
     Dosage: UNK, Q6MO
     Route: 065
     Dates: start: 20190918, end: 20190918
  2. EVISTA [Concomitant]
     Active Substance: RALOXIFENE HYDROCHLORIDE
     Dosage: UNK
     Dates: start: 20190918

REACTIONS (2)
  - Hypophagia [Unknown]
  - Gastroenteritis viral [Unknown]

NARRATIVE: CASE EVENT DATE: 201912
